FAERS Safety Report 17597211 (Version 1)
Quarter: 2020Q1

REPORT INFORMATION
  Report Type: Spontaneous
  Country: US (occurrence: US)
  Receive Date: 20200326
  Receipt Date: 20200326
  Transmission Date: 20200409
  Serious: Yes (Hospitalization)
  Sender: FDA-Public Use
  Company Number: None

PATIENT
  Age: 67 Year
  Sex: Male
  Weight: 84.4 kg

DRUGS (2)
  1. CARBOPLATIN. [Suspect]
     Active Substance: CARBOPLATIN
     Dates: end: 20200313
  2. TAXOTERE [Suspect]
     Active Substance: DOCETAXEL
     Dates: end: 20200313

REACTIONS (4)
  - Diarrhoea [None]
  - Clostridium test positive [None]
  - Sepsis [None]
  - Dyspnoea [None]

NARRATIVE: CASE EVENT DATE: 20200322
